FAERS Safety Report 6451017-7 (Version None)
Quarter: 2009Q4

REPORT INFORMATION
  Report Type: 
  Country: None (occurrence: None)
  Receive Date: 20091123
  Receipt Date: 20091117
  Transmission Date: 20100525
  Serious: Yes (Hospitalization, Other)
  Sender: FDA-Public Use
  Company Number: B0606728A

PATIENT
  Age: 2 Month
  Sex: Male

DRUGS (1)
  1. LANOXIN [Suspect]
     Indication: ATRIAL FLUTTER
     Route: 065

REACTIONS (2)
  - ACCIDENTAL OVERDOSE [None]
  - BRADYCARDIA [None]
